FAERS Safety Report 7156073-9 (Version None)
Quarter: 2010Q4

REPORT INFORMATION
  Report Type: 
  Country: None (occurrence: None)
  Receive Date: 20101214
  Receipt Date: 20101206
  Transmission Date: 20110411
  Serious: Yes (Hospitalization, Other)
  Sender: FDA-Public Use
  Company Number: CA-ABBOTT-10P-028-0690060-00

PATIENT
  Sex: Female
  Weight: 44.946 kg

DRUGS (3)
  1. HUMIRA [Suspect]
     Indication: CROHN'S DISEASE
     Route: 058
     Dates: start: 20071212, end: 20101001
  2. EFFEXOR [Concomitant]
     Indication: ANTIDEPRESSANT THERAPY
     Route: 048
     Dates: start: 20090201
  3. ACTONEL [Concomitant]
     Indication: OSTEOPOROSIS
     Route: 048

REACTIONS (3)
  - ABDOMINAL PAIN UPPER [None]
  - FAT TISSUE INCREASED [None]
  - GAIT DISTURBANCE [None]
